FAERS Safety Report 10597354 (Version 1)
Quarter: 2014Q4

REPORT INFORMATION
  Report Type: Spontaneous
  Country: US (occurrence: None)
  Receive Date: 20141120
  Receipt Date: 20141120
  Transmission Date: 20150529
  Serious: Yes (Death)
  Sender: FDA-Public Use
  Company Number: None

PATIENT
  Age: 63 Year
  Sex: Male
  Weight: 100.9 kg

DRUGS (8)
  1. INTEGRILIN [Suspect]
     Active Substance: EPTIFIBATIDE
     Indication: ANTICOAGULANT THERAPY
     Dosage: 1 MCG/KG/MIN, CONTINUOUS, IV
     Route: 042
     Dates: start: 20140421, end: 20140501
  2. PRASUGREL [Concomitant]
     Active Substance: PRASUGREL
  3. INTEGRILIN [Suspect]
     Active Substance: EPTIFIBATIDE
     Dosage: 1 MCG/KG/MIN, CONTINUOUS, IV
     Route: 042
     Dates: start: 20140421, end: 20140501
  4. METOPROLOL [Concomitant]
     Active Substance: METOPROLOL
  5. ASPIRIN. [Concomitant]
     Active Substance: ASPIRIN
  6. MULTIVITAMIN [Concomitant]
     Active Substance: VITAMINS
  7. HEPARIN [Concomitant]
     Active Substance: HEPARIN SODIUM
  8. ATORVASTATIN [Concomitant]
     Active Substance: ATORVASTATIN

REACTIONS (4)
  - Pulmonary alveolar haemorrhage [None]
  - Hypoxia [None]
  - Platelet count decreased [None]
  - Condition aggravated [None]

NARRATIVE: CASE EVENT DATE: 20140501
